FAERS Safety Report 22835105 (Version 2)
Quarter: 2024Q2

REPORT INFORMATION
  Report Type: Spontaneous
  Country: US (occurrence: US)
  Receive Date: 20230818
  Receipt Date: 20240528
  Transmission Date: 20240716
  Serious: No
  Sender: FDA-Public Use
  Company Number: US-SA-SAC20230816000928

PATIENT
  Age: 58 Year
  Sex: Female

DRUGS (1)
  1. DUPIXENT [Suspect]
     Active Substance: DUPILUMAB
     Indication: Dermatitis atopic
     Dosage: 300 MG, QOW
     Route: 058
     Dates: start: 202106

REACTIONS (5)
  - Abdominal discomfort [Unknown]
  - Dyspepsia [Unknown]
  - Eye pain [Unknown]
  - Dry skin [Not Recovered/Not Resolved]
  - Condition aggravated [Unknown]
